FAERS Safety Report 10308353 (Version 1)
Quarter: 2014Q3

REPORT INFORMATION
  Report Type: Spontaneous
  Country: FR (occurrence: FR)
  Receive Date: 20140716
  Receipt Date: 20140716
  Transmission Date: 20150326
  Serious: Yes (Hospitalization)
  Sender: FDA-Public Use
  Company Number: FR-PFIZER INC-2014193723

PATIENT
  Age: 60 Year
  Sex: Male

DRUGS (9)
  1. ALFUZOSINE [Concomitant]
     Active Substance: ALFUZOSIN HYDROCHLORIDE
  2. ZYVOXID [Suspect]
     Active Substance: LINEZOLID
     Indication: ANTIBIOTIC THERAPY
     Dosage: 600 MG, 2X/DAY
     Route: 048
     Dates: start: 20140613, end: 20140616
  3. HALDOL [Suspect]
     Active Substance: HALOPERIDOL
     Dosage: 5 MG, 2X/DAY
     Route: 048
     Dates: end: 20140613
  4. ALPRAZOLAM. [Concomitant]
     Active Substance: ALPRAZOLAM
     Dosage: OCCASIONALLY
  5. TAZOCILLINE [Suspect]
     Active Substance: PIPERACILLIN SODIUM\TAZOBACTAM SODIUM
     Indication: ANTIBIOTIC THERAPY
     Dosage: 4 G, 4X/DAY
     Route: 042
     Dates: start: 20140612, end: 20140612
  6. ARTANE [Suspect]
     Active Substance: TRIHEXYPHENIDYL HYDROCHLORIDE
     Dosage: 5 MG, 3X/DAY
     Route: 048
     Dates: start: 201401, end: 20140617
  7. AMOXICILLINE /00249603/ [Suspect]
     Active Substance: AMOXICILLIN SODIUM
     Indication: ANTIBIOTIC THERAPY
     Dosage: 2 G, 3X/DAY
     Route: 048
     Dates: start: 20140612, end: 20140616
  8. PREVISCAN [Concomitant]
     Active Substance: FLUINDIONE
  9. FLAGYL [Suspect]
     Active Substance: METRONIDAZOLE\METRONIDAZOLE HYDROCHLORIDE
     Indication: ANTIBIOTIC THERAPY
     Dosage: 500 MG, 3X/DAY
     Dates: start: 20140613, end: 20140615

REACTIONS (7)
  - Porphyria [None]
  - Masked facies [None]
  - Speech disorder [None]
  - Neuroleptic malignant syndrome [None]
  - Dyskinesia [None]
  - Renal failure acute [Recovered/Resolved]
  - Rhabdomyolysis [Recovered/Resolved]

NARRATIVE: CASE EVENT DATE: 20140615
